FAERS Safety Report 10274381 (Version 1)
Quarter: 2014Q3

REPORT INFORMATION
  Report Type: Spontaneous
  Country: US (occurrence: US)
  Receive Date: 20140702
  Receipt Date: 20140702
  Transmission Date: 20150326
  Serious: Yes (Hospitalization, Other)
  Sender: FDA-Public Use
  Company Number: US-ELI_LILLY_AND_COMPANY-US201406007764

PATIENT
  Sex: Male

DRUGS (3)
  1. HUMULIN N [Suspect]
     Active Substance: INSULIN HUMAN
     Indication: DIABETES MELLITUS
     Dosage: UNK UNK, BID
     Route: 065
     Dates: start: 2006
  2. HUMALOG [Suspect]
     Active Substance: INSULIN LISPRO
     Indication: DIABETES MELLITUS
     Dosage: UNK, BID
     Route: 065
     Dates: start: 2006
  3. HUMULIN N [Suspect]
     Active Substance: INSULIN HUMAN
     Dosage: UNK

REACTIONS (7)
  - Blood glucose increased [Unknown]
  - Chronic obstructive pulmonary disease [Unknown]
  - Bronchitis [Unknown]
  - Respiratory tract infection [Unknown]
  - Stress [Unknown]
  - Arrhythmia [Unknown]
  - Pneumonia [Unknown]

NARRATIVE: CASE EVENT DATE: 2012
